FAERS Safety Report 10060291 (Version 1)
Quarter: 2014Q2

REPORT INFORMATION
  Report Type: Spontaneous
  Country: FR (occurrence: FR)
  Receive Date: 20140404
  Receipt Date: 20140404
  Transmission Date: 20141212
  Serious: Yes (Hospitalization)
  Sender: FDA-Public Use
  Company Number: FR-JNJFOC-20140401848

PATIENT
  Age: 77 Year
  Sex: Female

DRUGS (13)
  1. XARELTO [Suspect]
     Indication: ATRIAL FIBRILLATION
     Route: 048
     Dates: end: 20140117
  2. XARELTO [Suspect]
     Indication: CEREBROVASCULAR ACCIDENT PROPHYLAXIS
     Route: 048
     Dates: end: 20140117
  3. TELFAST [Concomitant]
     Route: 048
     Dates: end: 20140116
  4. DIFFU K [Concomitant]
     Route: 048
     Dates: end: 20140116
  5. LEVOTHYROXINE SODIUM [Concomitant]
     Route: 065
  6. NOVORAPID [Concomitant]
     Route: 058
  7. SINGULAIR [Concomitant]
     Route: 048
  8. LASILIX [Concomitant]
     Route: 048
  9. CORDARONE [Concomitant]
     Route: 048
  10. NEBILOX [Concomitant]
     Route: 048
  11. UMULINE [Concomitant]
     Route: 058
  12. FURADANTINE [Concomitant]
     Route: 048
     Dates: start: 20140107, end: 20140116
  13. SERETIDE [Concomitant]
     Route: 065
     Dates: end: 20140116

REACTIONS (4)
  - Normochromic normocytic anaemia [Not Recovered/Not Resolved]
  - Coagulation factor V level decreased [Recovered/Resolved]
  - Prothrombin time ratio decreased [Recovered/Resolved]
  - International normalised ratio increased [Recovered/Resolved]
